FAERS Safety Report 6092416-5 (Version None)
Quarter: 2009Q1

REPORT INFORMATION
  Report Type: 
  Country: None (occurrence: None)
  Receive Date: 20090225
  Receipt Date: 20090220
  Transmission Date: 20090719
  Serious: Yes (Death, Hospitalization, Other)
  Sender: FDA-Public Use
  Company Number: PHHY2009CH06038

PATIENT
  Age: 85 Year
  Sex: Male

DRUGS (24)
  1. DIOVAN [Suspect]
     Dosage: 80 MG/D
  2. DIOVAN [Suspect]
     Dosage: 40 MG/D
     Dates: start: 20081008, end: 20081104
  3. RECORMON [Concomitant]
     Dosage: 5000 IE
     Dates: end: 20081104
  4. RECORMON [Concomitant]
     Dosage: 4000 IE/D
     Dates: start: 20081118, end: 20081120
  5. IRON [Concomitant]
     Dosage: UNK
     Dates: end: 20081104
  6. DILATREND [Concomitant]
     Dosage: UNK
     Dates: end: 20081104
  7. ASPIRIN [Concomitant]
     Dosage: UNK
     Dates: end: 20081104
  8. ASPIRIN [Concomitant]
     Dosage: 100 MG/D
     Dates: start: 20081119, end: 20081120
  9. FLUIMUCIL [Concomitant]
     Dosage: UNK
     Dates: end: 20081104
  10. TEMESTA [Concomitant]
     Dosage: 1 MG/D
     Dates: end: 20081120
  11. LASIX [Concomitant]
     Dosage: 20 X 2 MG
     Route: 042
     Dates: start: 20081118, end: 20081119
  12. LASIX [Concomitant]
     Dosage: 20 MG
     Dates: start: 20081119, end: 20081120
  13. INHALATION [Concomitant]
  14. PREDNISOLONE [Concomitant]
  15. TORSEMIDE [Concomitant]
     Dosage: 10 MG/D
     Route: 048
  16. FRAGMIN [Concomitant]
     Dosage: 5000 IE/D
     Route: 042
     Dates: start: 20081110, end: 20081118
  17. NEBILET [Concomitant]
     Dosage: 5 MG/D
     Dates: start: 20081119, end: 20081120
  18. FOLIC ACID [Concomitant]
     Dosage: 5 MG/D
     Dates: start: 20081120
  19. NEXIUM [Concomitant]
     Dosage: 40 MG/D
     Dates: start: 20081120
  20. LISIPRIL [Concomitant]
     Dosage: 5 MG/D
     Dates: start: 20081120
  21. FLUMAZENIL [Concomitant]
  22. VITAMIN K [Concomitant]
  23. MORPHINE [Concomitant]
  24. DEXTROSE 5% [Concomitant]
     Dosage: UNK
     Route: 042
     Dates: end: 20081104

REACTIONS (25)
  - ARTERIOSCLEROSIS [None]
  - ARTERIOSCLEROSIS CORONARY ARTERY [None]
  - BLOOD ALBUMIN DECREASED [None]
  - BRONCHOPNEUMONIA [None]
  - C-REACTIVE PROTEIN INCREASED [None]
  - CARDIAC FAILURE [None]
  - CARDIAC HYPERTROPHY [None]
  - CORONARY ARTERY STENOSIS [None]
  - DYSPNOEA [None]
  - EMPHYSEMA [None]
  - HEPATIC ENCEPHALOPATHY [None]
  - HEPATIC FAILURE [None]
  - HEPATIC FIBROSIS [None]
  - HEPATIC NECROSIS [None]
  - HEPATIC SIDEROSIS [None]
  - INTERNATIONAL NORMALISED RATIO INCREASED [None]
  - LIVER DISORDER [None]
  - MYOCARDIAL FIBROSIS [None]
  - OEDEMA PERIPHERAL [None]
  - PROSTATE CANCER [None]
  - PULMONARY FIBROSIS [None]
  - PYREXIA [None]
  - RENAL ARTERIOSCLEROSIS [None]
  - RENAL ARTERY THROMBOSIS [None]
  - SOMNOLENCE [None]
